FAERS Safety Report 15223749 (Version 3)
Quarter: 2018Q3

REPORT INFORMATION
  Report Type: Report from Study
  Country: US (occurrence: US)
  Receive Date: 20180731
  Receipt Date: 20180831
  Transmission Date: 20181010
  Serious: No
  Sender: FDA-Public Use
  Company Number: US-009507513-1807USA013128

PATIENT
  Age: 26 Year
  Sex: Female
  Weight: 66.67 kg

DRUGS (2)
  1. IMPLANON [Suspect]
     Active Substance: ETONOGESTREL
     Dosage: 68 MG (1 IMPLANT), UNK
     Dates: start: 20180730, end: 20180730
  2. IMPLANON [Suspect]
     Active Substance: ETONOGESTREL
     Dosage: 68 MG (1 IMPLANT), UNK
     Route: 059
     Dates: start: 20180730

REACTIONS (2)
  - Product quality issue [Unknown]
  - Complication of device insertion [Recovered/Resolved]

NARRATIVE: CASE EVENT DATE: 20180730
